FAERS Safety Report 14991888 (Version 4)
Quarter: 2018Q3

REPORT INFORMATION
  Report Type: Report from Study
  Country: US (occurrence: US)
  Receive Date: 20180608
  Receipt Date: 20180911
  Transmission Date: 20181010
  Serious: Yes (Hospitalization, Other)
  Sender: FDA-Public Use
  Company Number: US-ACTELION-A-US2018-166069

PATIENT
  Age: 56 Year
  Sex: Female
  Weight: 86.17 kg

DRUGS (6)
  1. ADEMPAS [Concomitant]
     Active Substance: RIOCIGUAT
     Dosage: UNK
     Dates: start: 20180510
  2. TYVASO [Suspect]
     Active Substance: TREPROSTINIL
     Indication: PRODUCT USED FOR UNKNOWN INDICATION
     Route: 065
  3. DEXAMETHASONE. [Concomitant]
     Active Substance: DEXAMETHASONE
     Dosage: UNK
     Dates: start: 20180727
  4. OPSUMIT [Suspect]
     Active Substance: MACITENTAN
     Indication: PULMONARY ARTERIAL HYPERTENSION
     Dosage: 10 MG, QD
     Route: 048
     Dates: start: 20171106, end: 20180828
  5. ADEMPAS [Concomitant]
     Active Substance: RIOCIGUAT
     Dosage: 2 MG, TID
  6. ZOSYN [Concomitant]
     Active Substance: PIPERACILLIN SODIUM\TAZOBACTAM SODIUM
     Dosage: UNK
     Dates: start: 20180727

REACTIONS (17)
  - Transplant evaluation [Unknown]
  - Condition aggravated [Not Recovered/Not Resolved]
  - Productive cough [Unknown]
  - Brain natriuretic peptide increased [Not Recovered/Not Resolved]
  - Cough [Unknown]
  - Respiratory failure [Unknown]
  - Pericardial effusion [Not Recovered/Not Resolved]
  - Alveolar lung disease [Unknown]
  - Pneumonia [Unknown]
  - Injury [Unknown]
  - Pulmonary hypertension [Not Recovered/Not Resolved]
  - Interstitial lung disease [Unknown]
  - Pulmonary fibrosis [Unknown]
  - Vomiting [Unknown]
  - Syncope [Recovered/Resolved]
  - Fall [Not Recovered/Not Resolved]
  - Lung transplant [Recovered/Resolved]

NARRATIVE: CASE EVENT DATE: 20180510
